FAERS Safety Report 7438553-1 (Version None)
Quarter: 2011Q2

REPORT INFORMATION
  Report Type: 
  Country: None (occurrence: None)
  Receive Date: 20110426
  Receipt Date: 20110413
  Transmission Date: 20111010
  Serious: Yes (Other)
  Sender: FDA-Public Use
  Company Number: US-BAYER-2011-033477

PATIENT
  Age: 84 Year
  Sex: Male
  Weight: 95.238 kg

DRUGS (4)
  1. ASPIRIN [Suspect]
     Indication: ISCHAEMIC HEART DISEASE PROPHYLAXIS
     Dosage: 325 MG, QD
  2. TRENTAL [Concomitant]
     Dosage: UNK
  3. ALEVE (CAPLET) [Suspect]
     Indication: ARTHRITIS
     Dosage: 440 MG, BID
     Route: 048
     Dates: start: 20110304, end: 20110311
  4. ALEVE (CAPLET) [Suspect]
     Dosage: 660 MG, QD
     Route: 048
     Dates: start: 20110312, end: 20110318

REACTIONS (1)
  - HAEMOPTYSIS [None]
